FAERS Safety Report 13727747 (Version 1)
Quarter: 2017Q3

REPORT INFORMATION
  Report Type: Spontaneous
  Country: KR (occurrence: KR)
  Receive Date: 20170707
  Receipt Date: 20170707
  Transmission Date: 20171127
  Serious: Yes (Hospitalization)
  Sender: FDA-Public Use
  Company Number: KR-SUN PHARMACEUTICAL INDUSTRIES LTD-2016R1-116322

PATIENT
  Age: 21 Year
  Sex: Female

DRUGS (3)
  1. BLONANSERIN [Suspect]
     Active Substance: BLONANSERIN
     Indication: SCHIZOPHRENIA
     Dosage: 4 MG, DAILY
     Route: 065
  2. LORAZEPAM. [Suspect]
     Active Substance: LORAZEPAM
     Indication: SCHIZOPHRENIA
     Dosage: 1.5 MG, DAILY
     Route: 065
  3. HALOPERIDOL. [Suspect]
     Active Substance: HALOPERIDOL
     Indication: SCHIZOPHRENIA
     Dosage: 2.5 MG
     Route: 030
     Dates: start: 20141124, end: 20150110

REACTIONS (3)
  - Dyskinesia [Recovering/Resolving]
  - Parkinsonism [Recovering/Resolving]
  - Extrapyramidal disorder [Recovering/Resolving]

NARRATIVE: CASE EVENT DATE: 20141124
